FAERS Safety Report 9215943 (Version 1)
Quarter: 2013Q2

REPORT INFORMATION
  Report Type: Spontaneous
  Country: US (occurrence: None)
  Receive Date: 20130405
  Receipt Date: 20130405
  Transmission Date: 20140414
  Serious: Yes (Other)
  Sender: FDA-Public Use
  Company Number: USW201303-000025

PATIENT
  Age: 82 Year
  Sex: Male
  Weight: 99.79 kg

DRUGS (4)
  1. APOKYN [Suspect]
     Indication: PARKINSON^S DISEASE
     Dosage: AS NEEDED MOSTLY ONCE IN THE MORNING
  2. CARBIDOPA AND LEVODOPA (CARBIDOPA, LEVODOPA)(CARBIDOPA, LEVODOPA) [Concomitant]
  3. AZILECT (RASAGILINE)(RASAGILINE) [Concomitant]
  4. AMANTADINE (AMANTADINE)(AMANTADINE) [Concomitant]

REACTIONS (6)
  - Loss of consciousness [None]
  - Hypotension [None]
  - Urinary tract infection [None]
  - Rash [None]
  - Urinary incontinence [None]
  - Exophthalmos [None]
